FAERS Safety Report 9603109 (Version 1)
Quarter: 2013Q4

REPORT INFORMATION
  Report Type: Spontaneous
  Country: JP (occurrence: JP)
  Receive Date: 20131007
  Receipt Date: 20131007
  Transmission Date: 20140711
  Serious: Yes (Other)
  Sender: FDA-Public Use
  Company Number: JP-GLAXOSMITHKLINE-B0927624A

PATIENT
  Sex: 0

DRUGS (3)
  1. PAXIL CR [Suspect]
     Indication: AFFECTIVE DISORDER
     Route: 048
     Dates: start: 20130930
  2. DEZOLAM [Concomitant]
     Indication: ANXIETY
     Route: 048
  3. MOSAPRIDE CITRATE [Concomitant]
     Indication: GASTROINTESTINAL DISORDER
     Route: 048

REACTIONS (5)
  - Palpitations [Not Recovered/Not Resolved]
  - Tetany [Not Recovered/Not Resolved]
  - Hypoaesthesia [Not Recovered/Not Resolved]
  - Eyelid oedema [Not Recovered/Not Resolved]
  - Eyelid function disorder [Not Recovered/Not Resolved]
